FAERS Safety Report 5800377-6 (Version None)
Quarter: 2008Q3

REPORT INFORMATION
  Report Type: 
  Country: None (occurrence: None)
  Receive Date: 20080703
  Receipt Date: 20080626
  Transmission Date: 20090109
  Serious: Yes (Death, Hospitalization)
  Sender: FDA-Public Use
  Company Number: US-MERCK-0806USA08873

PATIENT
  Age: 59 Year
  Sex: Female

DRUGS (2)
  1. DECADRON [Suspect]
     Indication: ANGIOIMMUNOBLASTIC T-CELL LYMPHOMA
     Route: 048
     Dates: start: 20040801, end: 20040101
  2. CYCLOPHOSPHAMIDE AND DOXORUBICIN AND VINCRISTINE SULFATE [Suspect]
     Indication: ANGIOIMMUNOBLASTIC T-CELL LYMPHOMA
     Route: 065
     Dates: start: 20040801, end: 20040101

REACTIONS (3)
  - DEATH [None]
  - FEBRILE NEUTROPENIA [None]
  - SEPSIS [None]
